FAERS Safety Report 8347328-0 (Version None)
Quarter: 2012Q2

REPORT INFORMATION
  Report Type: 
  Country: None (occurrence: None)
  Receive Date: 20120509
  Receipt Date: 20120425
  Transmission Date: 20120825
  Serious: Yes (Hospitalization)
  Sender: FDA-Public Use
  Company Number: CA-ROCHE-1063371

PATIENT
  Age: 64 Year
  Sex: Female
  Weight: 68.1 kg

DRUGS (7)
  1. TAMIFLU [Suspect]
     Indication: PRODUCT USED FOR UNKNOWN INDICATION
     Route: 065
  2. CLARITHROMYCIN [Suspect]
     Indication: PRODUCT USED FOR UNKNOWN INDICATION
     Route: 065
  3. HUMIRA [Suspect]
     Indication: PRODUCT USED FOR UNKNOWN INDICATION
     Route: 058
  4. NAPROSYN [Concomitant]
     Route: 048
  5. METHOTREXATE [Concomitant]
     Route: 048
  6. CALCIUM [Concomitant]
     Route: 065
  7. FOLIC ACID [Concomitant]
     Route: 065

REACTIONS (10)
  - PNEUMONIA VIRAL [None]
  - DECREASED APPETITE [None]
  - ASTHENIA [None]
  - COUGH [None]
  - PYREXIA [None]
  - WEIGHT DECREASED [None]
  - DYSGEUSIA [None]
  - NASOPHARYNGITIS [None]
  - DIARRHOEA [None]
  - PNEUMONIA BACTERIAL [None]
